FAERS Safety Report 17891692 (Version 1)
Quarter: 2020Q2

REPORT INFORMATION
  Report Type: Spontaneous
  Country: US (occurrence: US)
  Receive Date: 20200612
  Receipt Date: 20200612
  Transmission Date: 20200714
  Serious: Yes (Hospitalization, Other)
  Sender: FDA-Public Use
  Company Number: US-GLAXOSMITHKLINE-US2020AMR098788

PATIENT
  Sex: Female

DRUGS (1)
  1. NUCALA [Suspect]
     Active Substance: MEPOLIZUMAB
     Indication: ASTHMA
     Dosage: 100 MG, CYC
     Route: 065

REACTIONS (6)
  - Oxygen saturation decreased [Unknown]
  - Pneumonia viral [Unknown]
  - Eosinophil count abnormal [Unknown]
  - Malaise [Unknown]
  - Product dose omission [Unknown]
  - Ill-defined disorder [Unknown]
